FAERS Safety Report 8210515-6 (Version None)
Quarter: 2012Q1

REPORT INFORMATION
  Report Type: 
  Country: None (occurrence: None)
  Receive Date: 20120314
  Receipt Date: 20110929
  Transmission Date: 20120608
  Serious: No
  Sender: FDA-Public Use
  Company Number: US-ASTRAZENECA-2009SE18142

PATIENT
  Age: 64 Year
  Sex: Female

DRUGS (7)
  1. TOPROL-XL [Suspect]
     Dosage: TOTAL DAILY DOSE 25 MG , TWO TIMES A DAY
     Route: 048
  2. NEURONTIN [Concomitant]
  3. HYDROCHLOROTHIAZIDE [Concomitant]
  4. TOPROL-XL [Suspect]
     Route: 048
  5. METOPROLOL SUCCINATE [Suspect]
     Route: 065
  6. CYMBALTA [Concomitant]
  7. TOPROL-XL [Suspect]
     Route: 048
     Dates: start: 20070301

REACTIONS (18)
  - BLOOD GLUCOSE INCREASED [None]
  - WEIGHT INCREASED [None]
  - ABDOMINAL DISTENSION [None]
  - HYPERTENSION [None]
  - BLOOD PRESSURE INADEQUATELY CONTROLLED [None]
  - HYPERPHAGIA [None]
  - FEELING DRUNK [None]
  - BLOOD PRESSURE ABNORMAL [None]
  - MENOPAUSE [None]
  - FATIGUE [None]
  - NAUSEA [None]
  - VOMITING [None]
  - DECREASED APPETITE [None]
  - HEART RATE INCREASED [None]
  - DRUG INTOLERANCE [None]
  - MALAISE [None]
  - HEADACHE [None]
  - DRUG INEFFECTIVE [None]
